FAERS Safety Report 15754733 (Version 4)
Quarter: 2022Q1

REPORT INFORMATION
  Report Type: Other
  Country: NL (occurrence: None)
  Receive Date: 20181224
  Receipt Date: 20220112
  Transmission Date: 20220424
  Serious: No
  Sender: FDA-Public Use
  Company Number: NL-ROCHE-2233414

PATIENT
  Age: 24 Year
  Sex: Female
  Weight: 83 kg

DRUGS (17)
  1. OCRELIZUMAB [Suspect]
     Active Substance: OCRELIZUMAB
     Indication: Multiple sclerosis
     Dosage: 300 MG/ 250ML?DOSE UNIT OF LAST OCRELIZUMAB ADMINISTERED PRIOR TO FLU ONSET: MG?TOTAL VOLUME UNIT OF
     Route: 042
     Dates: start: 20181130, end: 20181130
  2. OCRELIZUMAB [Suspect]
     Active Substance: OCRELIZUMAB
     Dosage: 300 MG/ 250ML
     Route: 042
     Dates: start: 20181214, end: 20181214
  3. OCRELIZUMAB [Suspect]
     Active Substance: OCRELIZUMAB
     Dosage: 600 MG/ 500 ML?VISIT 4
     Route: 042
     Dates: start: 20190710, end: 20190710
  4. OCRELIZUMAB [Suspect]
     Active Substance: OCRELIZUMAB
     Dosage: 600 MG/ 500 ML?VISIT 4
     Route: 042
     Dates: start: 20200106, end: 20200106
  5. ASPIRIN [Concomitant]
     Active Substance: ASPIRIN
     Indication: Necrosis
     Route: 048
     Dates: start: 2017
  6. PAROL [Concomitant]
     Active Substance: ACETAMINOPHEN
     Indication: Influenza
     Route: 048
     Dates: start: 20181217, end: 20181219
  7. PAROL [Concomitant]
     Active Substance: ACETAMINOPHEN
     Dosage: ONCE BEFORE INFUSION
     Route: 048
     Dates: start: 20181130, end: 20181130
  8. PHENIRAMINE [Concomitant]
     Active Substance: PHENIRAMINE
     Dosage: ONCE BEFORE INFUSION?1 AMPULE
     Route: 042
     Dates: start: 20181130, end: 20181130
  9. DEKORT [Concomitant]
     Active Substance: DEXAMETHASONE
     Dosage: ONCE BEFORE INFUSION?1 AMPULE
     Route: 042
     Dates: start: 20181130, end: 20181130
  10. DEKORT [Concomitant]
     Active Substance: DEXAMETHASONE
     Dosage: ONCE BEFORE INFUSION?1 AMPULE
     Route: 042
     Dates: start: 20181214, end: 20181214
  11. AVIJECT [Concomitant]
     Dosage: ONCE BEFORE INFUSION?1 AMPULE
     Route: 042
     Dates: start: 20181214, end: 20181214
  12. CAUPHE [Concomitant]
     Indication: Premedication
     Dosage: ONCE BEFORE INFUSION
     Route: 042
     Dates: start: 20190710, end: 20190710
  13. CAUPHE [Concomitant]
     Dosage: ONCE BEFORE INFUSION
     Route: 042
     Dates: start: 20200106, end: 20200106
  14. DEXOJECT [Concomitant]
     Indication: Premedication
     Dosage: ONCE BEFORE INFUSION
     Route: 042
     Dates: start: 20190710, end: 20190710
  15. DEXOJECT [Concomitant]
     Dosage: ONCE BEFORE INFUSION
     Route: 042
     Dates: start: 20200106, end: 20200106
  16. TAMOL [PARACETAMOL] [Concomitant]
     Indication: Premedication
     Dosage: ONCE BEFORE INFUSION
     Route: 048
     Dates: start: 20190710, end: 20190710
  17. TAMOL [PARACETAMOL] [Concomitant]
     Dosage: ONCE BEFORE INFUSION
     Route: 042
     Dates: start: 20200106, end: 20200106

REACTIONS (1)
  - Influenza [Recovered/Resolved]

NARRATIVE: CASE EVENT DATE: 20181215
